FAERS Safety Report 24277081 (Version 1)
Quarter: 2024Q3

REPORT INFORMATION
  Report Type: Spontaneous
  Country: US (occurrence: None)
  Receive Date: 20240829
  Receipt Date: 20240829
  Transmission Date: 20241016
  Serious: No
  Sender: Public
  Company Number: None

PATIENT
  Age: 49 Year
  Sex: Female

DRUGS (2)
  1. DEVICE [Suspect]
     Active Substance: DEVICE
     Indication: Immunodeficiency common variable
     Dosage: FREQUENCY : TWICE A DAY;?
     Route: 042
     Dates: start: 202205
  2. XEMBIFY [Suspect]
     Active Substance: HUMAN IMMUNOGLOBULIN G
     Indication: Immunodeficiency common variable
     Route: 058
     Dates: start: 202205

REACTIONS (5)
  - Incorrect drug administration rate [None]
  - Device malfunction [None]
  - Headache [None]
  - Nausea [None]
  - Device infusion issue [None]

NARRATIVE: CASE EVENT DATE: 20240801
